FAERS Safety Report 24574768 (Version 1)
Quarter: 2024Q4

REPORT INFORMATION
  Report Type: Report from Study
  Country: DE (occurrence: DE)
  Receive Date: 20241104
  Receipt Date: 20241104
  Transmission Date: 20250115
  Serious: Yes (Hospitalization)
  Sender: ABBVIE
  Company Number: DE-ABBVIE-5985433

PATIENT
  Age: 64 Year
  Sex: Male

DRUGS (1)
  1. FOSCARBIDOPA\FOSLEVODOPA [Suspect]
     Active Substance: FOSCARBIDOPA\FOSLEVODOPA
     Indication: Parkinson^s disease
     Dosage: SD: 0.60 ML, CRN: 0.43 ML/H, CR: 0.53 ML/H, CRH: 0.56 ML/H, ED: 0.30 ML, LAST ADMIN DATE: 2024
     Route: 058
     Dates: start: 20240820

REACTIONS (2)
  - Infusion site laceration [Recovered/Resolved]
  - Infusion site inflammation [Unknown]

NARRATIVE: CASE EVENT DATE: 20240101
